FAERS Safety Report 5677195-5 (Version None)
Quarter: 2008Q1

REPORT INFORMATION
  Report Type: 
  Country: None (occurrence: None)
  Receive Date: 20080318
  Receipt Date: 20080306
  Transmission Date: 20080703
  Serious: Yes (Other)
  Sender: FDA-Public Use
  Company Number: DSA_31585_2008

PATIENT
  Sex: Female
  Weight: 53.5244 kg

DRUGS (8)
  1. CARDIZEM LA [Suspect]
     Indication: HYPERTENSION
     Dosage: (240 MG QD ORAL)
     Route: 048
     Dates: start: 20071101, end: 20071101
  2. CARDIZEM LA [Suspect]
     Indication: HYPERTENSION
     Dosage: (120 MG QD DOSE INCREASED TO 240 MG WHEN NEEDED; ORAL), (240 MG PRN ORAL)
     Route: 048
     Dates: start: 20070101
  3. CARDIZEM LA [Suspect]
     Indication: HYPERTENSION
     Dosage: (120 MG QD DOSE INCREASED TO 240 MG WHEN NEEDED; ORAL), (240 MG PRN ORAL)
     Route: 048
     Dates: start: 20080301
  4. EYE DROPS (NOT SPECIFIED) [Suspect]
     Indication: DRUG USE FOR UNKNOWN INDICATION
  5. THYROID TAB [Concomitant]
  6. DITROPAN [Concomitant]
  7. TIMOLOL MALEATE [Concomitant]
  8. ASPIRIN [Concomitant]

REACTIONS (8)
  - BLOOD PRESSURE INCREASED [None]
  - DRUG HYPERSENSITIVITY [None]
  - INCORRECT DOSE ADMINISTERED [None]
  - INTRAOCULAR PRESSURE INCREASED [None]
  - OPTIC NERVE INJURY [None]
  - REFUSAL OF TREATMENT BY PATIENT [None]
  - TREATMENT NONCOMPLIANCE [None]
  - VISUAL DISTURBANCE [None]
